FAERS Safety Report 12483410 (Version 4)
Quarter: 2016Q3

REPORT INFORMATION
  Report Type: Spontaneous
  Country: US (occurrence: US)
  Receive Date: 20160621
  Receipt Date: 20160909
  Transmission Date: 20161109
  Serious: Yes (Other)
  Sender: FDA-Public Use
  Company Number: US-AMGEN-USASP2016077739

PATIENT
  Age: 85 Year
  Sex: Female

DRUGS (9)
  1. ENBREL [Suspect]
     Active Substance: ETANERCEPT
     Dosage: UNK UNK, UNK
     Route: 065
  2. BIOTIN [Concomitant]
     Active Substance: BIOTIN
     Dosage: 5000 MCG
  3. PREDNISONE. [Concomitant]
     Active Substance: PREDNISONE
     Indication: NECK PAIN
     Dosage: 1 MG, UNK
     Dates: start: 2016
  4. LOSARTIN [Concomitant]
     Active Substance: LOSARTAN
     Dosage: 25 MG, UNK
  5. VITAMIN D [Concomitant]
     Active Substance: CHOLECALCIFEROL
     Dosage: UNK
  6. PREDNISONE. [Concomitant]
     Active Substance: PREDNISONE
     Indication: MUSCULOSKELETAL DISCOMFORT
  7. ENBREL [Suspect]
     Active Substance: ETANERCEPT
     Indication: RHEUMATOID ARTHRITIS
     Dosage: 50 MG, QWK
     Route: 065
     Dates: start: 2016, end: 201608
  8. CALCIUM [Concomitant]
     Active Substance: CALCIUM
     Dosage: UNK
  9. PRILOSEC [Suspect]
     Active Substance: OMEPRAZOLE MAGNESIUM
     Indication: PRODUCT USED FOR UNKNOWN INDICATION
     Dosage: UNK
     Route: 065

REACTIONS (12)
  - Sjogren^s syndrome [Unknown]
  - Dry mouth [Unknown]
  - Eructation [Unknown]
  - Glaucoma [Unknown]
  - Lip dry [Unknown]
  - Musculoskeletal discomfort [Unknown]
  - Dry throat [Unknown]
  - Productive cough [Not Recovered/Not Resolved]
  - Dry eye [Unknown]
  - Neck pain [Not Recovered/Not Resolved]
  - Peripheral swelling [Unknown]
  - Tooth extraction [Unknown]

NARRATIVE: CASE EVENT DATE: 2016
